FAERS Safety Report 6160601-X (Version None)
Quarter: 2009Q2

REPORT INFORMATION
  Report Type: 
  Country: None (occurrence: None)
  Receive Date: 20090420
  Receipt Date: 20090410
  Transmission Date: 20091009
  Serious: Yes (Hospitalization)
  Sender: FDA-Public Use
  Company Number: FR-BRISTOL-MYERS SQUIBB COMPANY-14592703

PATIENT
  Age: 58 Year
  Sex: Female

DRUGS (8)
  1. GLUCOPHAGE [Suspect]
     Route: 048
     Dates: start: 20081204
  2. ACTOS [Suspect]
     Dosage: ACTOS 30MG TABLET REDUCED TO 15MG DAILY
     Route: 048
     Dates: start: 20081204, end: 20090206
  3. DIAMICRON [Suspect]
     Dosage: DIAMICRON 40MG PROLONGED-RELEASE TABLET
     Route: 048
     Dates: start: 20081204
  4. PRETERAX [Concomitant]
     Dosage: 1 DOSAGE FORM = 2MG/0.625MG
     Dates: start: 20081204
  5. NEBILOX [Concomitant]
     Route: 048
     Dates: start: 20081204
  6. DIFFU-K [Concomitant]
     Route: 048
     Dates: start: 20081204
  7. CETIRIZINE [Concomitant]
     Dosage: TAKEN ON EVENING
     Route: 048
     Dates: start: 20081204
  8. TAHOR [Concomitant]
     Route: 048
     Dates: start: 20081204

REACTIONS (1)
  - HYPOGLYCAEMIC SEIZURE [None]
